FAERS Safety Report 22708300 (Version 6)
Quarter: 2024Q4

REPORT INFORMATION
  Report Type: Report from Study
  Country: US (occurrence: US)
  Receive Date: 20230715
  Receipt Date: 20241010
  Transmission Date: 20250115
  Serious: Yes (Hospitalization, Other)
  Sender: INCYTE
  Company Number: US-INCYTE CORPORATION-2023IN007236

PATIENT

DRUGS (12)
  1. JAKAFI [Suspect]
     Active Substance: RUXOLITINIB
     Indication: Myelofibrosis
     Dosage: 10 MILLIGRAM, BID
     Route: 065
  2. JAKAFI [Suspect]
     Active Substance: RUXOLITINIB
     Indication: Polycythaemia vera
     Dosage: 10 MILLIGRAM
     Route: 065
  3. JAKAFI [Suspect]
     Active Substance: RUXOLITINIB
     Dosage: 10 MILLIGRAM, QD (WITH OR WITHOUT FOOD, AVOID GRAPEFRUIT PRODUCTS)
     Route: 048
  4. JAKAFI [Suspect]
     Active Substance: RUXOLITINIB
     Dosage: ONCE DAILY
     Route: 065
  5. JAKAFI [Suspect]
     Active Substance: RUXOLITINIB
     Dosage: 10 MILLIGRAM, BID
     Route: 048
     Dates: start: 20230330
  6. JAKAFI [Suspect]
     Active Substance: RUXOLITINIB
     Dosage: 10 MILLIGRAM, BID (WITH OR WITHOUT FOOD, AVOID GRAPEFRUIT PRODUCTS)
     Route: 048
  7. JAKAFI [Suspect]
     Active Substance: RUXOLITINIB
     Dosage: 10 MILLIGRAM, BID (WITH OR WITHOUT FOOD, AVOID GRAPEFRUIT PRODUCTS)
     Route: 048
  8. CENTRUM GENDER +50 [Concomitant]
     Indication: Product used for unknown indication
     Route: 065
  9. IRON [Concomitant]
     Active Substance: IRON
     Indication: Product used for unknown indication
     Dosage: 28 MILLIGRAM
     Route: 065
  10. MAGNESIUM [Concomitant]
     Active Substance: MAGNESIUM
     Indication: Product used for unknown indication
     Dosage: 400 MILLIGRAM
     Route: 065
  11. VITAMINS NOS [Concomitant]
     Active Substance: VITAMINS
     Indication: Product used for unknown indication
     Dosage: UNK
     Route: 065
  12. POTASSIUM [Concomitant]
     Active Substance: POTASSIUM
     Indication: Product used for unknown indication
     Dosage: 99 MILLIGRAM
     Route: 065

REACTIONS (25)
  - Haemorrhage [Unknown]
  - Epistaxis [Unknown]
  - Syncope [Unknown]
  - Fall [Unknown]
  - Pain in extremity [Unknown]
  - Hand fracture [Unknown]
  - Somnolence [Unknown]
  - Vessel puncture site discolouration [Recovered/Resolved]
  - White blood cell count abnormal [Unknown]
  - Fatigue [Unknown]
  - Vomiting [Unknown]
  - Hyperphagia [Unknown]
  - Depression [Unknown]
  - Strabismus [Unknown]
  - Full blood count abnormal [Recovering/Resolving]
  - Dysstasia [Unknown]
  - Fine motor skill dysfunction [Unknown]
  - Bone disorder [Unknown]
  - Feeling abnormal [Unknown]
  - Inappropriate schedule of product administration [Unknown]
  - Dizziness [Unknown]
  - Nausea [Unknown]
  - Muscle spasms [Unknown]
  - Weight increased [Unknown]
  - Vertigo [Unknown]

NARRATIVE: CASE EVENT DATE: 20240801
